FAERS Safety Report 11227882 (Version 8)
Quarter: 2015Q4

REPORT INFORMATION
  Report Type: Spontaneous
  Country: JP (occurrence: JP)
  Receive Date: 20150630
  Receipt Date: 20151120
  Transmission Date: 20160304
  Serious: Yes (Other)
  Sender: FDA-Public Use
  Company Number: JP-GLAXOSMITHKLINE-JP2015JPN092403

PATIENT
  Age: 47 Year
  Sex: Female
  Weight: 43 kg

DRUGS (5)
  1. ALLERMIST [Suspect]
     Active Substance: FLUTICASONE FUROATE
     Indication: RHINITIS
     Dosage: 27.5 UG, QD
     Route: 045
     Dates: start: 2011, end: 20150626
  2. ALLEGRA [Concomitant]
     Active Substance: FEXOFENADINE HYDROCHLORIDE
     Dosage: 1 DF, BID
  3. FERROMIA (JAPAN) [Concomitant]
     Dosage: 50 MG, BID
  4. EPADEL [Concomitant]
     Active Substance: ICOSAPENT
     Dosage: 900 MG, BID
  5. MUCOSTA [Concomitant]
     Active Substance: REBAMIPIDE
     Dosage: 100 MG, BID

REACTIONS (1)
  - Fungal oesophagitis [Recovering/Resolving]

NARRATIVE: CASE EVENT DATE: 20150605
